FAERS Safety Report 14287700 (Version 2)
Quarter: 2017Q4

REPORT INFORMATION
  Report Type: Spontaneous
  Country: PE (occurrence: PE)
  Receive Date: 20171214
  Receipt Date: 20171221
  Transmission Date: 20180321
  Serious: Yes (Life-Threatening)
  Sender: FDA-Public Use
  Company Number: PE-DSJP-DSU-2016-139429

PATIENT

DRUGS (4)
  1. OLMETEC ANLO [Suspect]
     Active Substance: AMLODIPINE BESYLATE\OLMESARTAN MEDOXOMIL
     Indication: HYPERTENSION
     Dosage: 40/10 MG, QD (MORNING)
     Route: 048
     Dates: start: 20160930, end: 20161119
  2. OLMETEC ANLO [Suspect]
     Active Substance: AMLODIPINE BESYLATE\OLMESARTAN MEDOXOMIL
     Dosage: 0.5 DF (40/10 MG), QD
     Route: 048
     Dates: start: 20161119
  3. ANFIBOL [Concomitant]
     Indication: HYPERTENSION
     Dosage: 1 DF, QD (NIGHT)
     Route: 048
     Dates: start: 20160930
  4. EUTIROX [Concomitant]
     Active Substance: LEVOTHYROXINE SODIUM
     Indication: HYPOTHYROIDISM
     Dosage: 75 MG, QD
     Route: 048

REACTIONS (4)
  - Off label use [Not Recovered/Not Resolved]
  - Peripheral swelling [Unknown]
  - Renal disorder [Unknown]
  - Blood uric acid increased [Unknown]

NARRATIVE: CASE EVENT DATE: 201610
